FAERS Safety Report 15525100 (Version 3)
Quarter: 2018Q4

REPORT INFORMATION
  Report Type: Spontaneous
  Country: PT (occurrence: PT)
  Receive Date: 20181018
  Receipt Date: 20181027
  Transmission Date: 20190205
  Serious: Yes (Hospitalization, Other)
  Sender: FDA-Public Use
  Company Number: PT-009507513-1810PRT004866

PATIENT
  Age: 74 Year
  Sex: Female

DRUGS (1)
  1. SIMVASTATIN. [Suspect]
     Active Substance: SIMVASTATIN
     Indication: DYSLIPIDAEMIA
     Route: 048

REACTIONS (1)
  - Immune-mediated necrotising myopathy [Recovering/Resolving]
